FAERS Safety Report 24579956 (Version 1)
Quarter: 2024Q4

REPORT INFORMATION
  Report Type: Spontaneous
  Country: US (occurrence: None)
  Receive Date: 20241104
  Receipt Date: 20241104
  Transmission Date: 20250114
  Serious: No
  Sender: Public
  Company Number: None

PATIENT
  Age: 76 Year
  Sex: Male
  Weight: 98 kg

DRUGS (1)
  1. METOPROLOL SUCCINATE [Suspect]
     Active Substance: METOPROLOL SUCCINATE
     Dosage: FREQUENCY : DAILY;?
     Route: 048
     Dates: start: 20230707, end: 20231228

REACTIONS (1)
  - Bradycardia [None]

NARRATIVE: CASE EVENT DATE: 20231228
